FAERS Safety Report 25086979 (Version 1)
Quarter: 2025Q1

REPORT INFORMATION
  Report Type: Spontaneous
  Country: US (occurrence: US)
  Receive Date: 20250318
  Receipt Date: 20250318
  Transmission Date: 20250408
  Serious: No
  Sender: AMGEN
  Company Number: US-AMGEN-USASP2025049144

PATIENT
  Age: 71 Year
  Sex: Male

DRUGS (14)
  1. REPATHA [Suspect]
     Active Substance: EVOLOCUMAB
     Indication: Blood cholesterol abnormal
     Dosage: UNK, Q2WK
     Route: 065
  2. METFORMIN [Concomitant]
     Active Substance: METFORMIN HYDROCHLORIDE
     Route: 065
  3. LISINOPRIL [Concomitant]
     Active Substance: LISINOPRIL
     Dosage: 40 MILLIGRAM, QD
     Route: 065
  4. CITALOPRAM [Concomitant]
     Active Substance: CITALOPRAM
     Dosage: 20 MILLIGRAM, QD
     Route: 065
  5. CLONAZEPAM [Concomitant]
     Active Substance: CLONAZEPAM
     Dosage: 1 MILLIGRAM, QD
     Route: 065
  6. OZEMPIC [Concomitant]
     Active Substance: SEMAGLUTIDE
     Dosage: 1 MILLIGRAM, QWK
  7. RESTASIS [Concomitant]
     Active Substance: CYCLOSPORINE
     Dosage: 05 PERCENT, QD
     Route: 065
  8. COLCHICINE [Concomitant]
     Active Substance: COLCHICINE
     Dosage: 6 MILLIGRAM, QD
  9. AJOVY [Concomitant]
     Active Substance: FREMANEZUMAB-VFRM
     Dosage: 225 MILLIGRAM, QMO
     Route: 065
  10. ASPIRIN [Concomitant]
     Active Substance: ASPIRIN
     Route: 065
  11. CARVEDILOL [Concomitant]
     Active Substance: CARVEDILOL
     Route: 065
  12. AMLODIPINE [Concomitant]
     Active Substance: AMLODIPINE BESYLATE
     Dosage: 10 MILLIGRAM, QD
  13. TRAMADOL [Concomitant]
     Active Substance: TRAMADOL
     Route: 065
  14. COVID-19 vaccine [Concomitant]

REACTIONS (2)
  - Neck pain [Not Recovered/Not Resolved]
  - Fatigue [Unknown]

NARRATIVE: CASE EVENT DATE: 20241201
